FAERS Safety Report 12703653 (Version 2)
Quarter: 2016Q4

REPORT INFORMATION
  Report Type: Spontaneous
  Country: US (occurrence: US)
  Receive Date: 20160831
  Receipt Date: 20161005
  Transmission Date: 20170207
  Serious: Yes (Hospitalization, Other)
  Sender: FDA-Public Use
  Company Number: US-PFIZER INC-2016405452

PATIENT
  Sex: Female

DRUGS (1)
  1. GEODON [Suspect]
     Active Substance: ZIPRASIDONE HYDROCHLORIDE\ZIPRASIDONE MESYLATE
     Indication: CATATONIA
     Dosage: 20 MG, 3X/DAY
     Route: 030
     Dates: start: 2010, end: 201011

REACTIONS (3)
  - Neuroleptic malignant syndrome [Unknown]
  - Mutism [Unknown]
  - Dehydration [Unknown]

NARRATIVE: CASE EVENT DATE: 20101110
